FAERS Safety Report 6516331-5 (Version None)
Quarter: 2009Q4

REPORT INFORMATION
  Report Type: 
  Country: None (occurrence: None)
  Receive Date: 20091215
  Receipt Date: 20090325
  Transmission Date: 20100525
  Serious: Yes (Other)
  Sender: FDA-Public Use
  Company Number: ENTC2009-0109

PATIENT
  Sex: Female

DRUGS (6)
  1. STALEVO 100 [Suspect]
  2. LEVOTHYROXINE SODIUM [Concomitant]
  3. ALBUTEROL [Concomitant]
  4. ADVIL [Concomitant]
  5. MULTI-VITAMINS [Concomitant]
  6. CALCIUM [Concomitant]

REACTIONS (2)
  - BLOOD URINE PRESENT [None]
  - CHROMATURIA [None]
